FAERS Safety Report 6238330 (Version 11)
Quarter: 2015Q1

REPORT INFORMATION
  Report Type: Spontaneous
  Country: US (occurrence: US)
  Receive Date: 20070215
  Receipt Date: 20150316
  Transmission Date: 20150721
  Serious: Yes (Hospitalization, Other)
  Sender: FDA-Public Use
  Company Number: US-AMGEN-KDL207977

PATIENT
  Age: 34 Year
  Sex: Male
  Weight: 67.1 kg

DRUGS (19)
  1. BUPROPION [Concomitant]
     Active Substance: BUPROPION
     Dosage: UNK UNK, UNK
  2. EPOGEN [Suspect]
     Active Substance: ERYTHROPOIETIN
     Indication: NEPHROGENIC ANAEMIA
     Dosage: 30000 IU, 3 TIMES/WK
     Route: 058
     Dates: start: 200407, end: 20070206
  3. SENSIPAR [Concomitant]
     Active Substance: CINACALCET HYDROCHLORIDE
     Indication: HYPERPARATHYROIDISM
     Dosage: 30 MG, QD
     Route: 048
  4. SEVELAMER HCL [Concomitant]
     Dosage: UNK UNK, UNK
  5. ALLOPURINOL. [Concomitant]
     Active Substance: ALLOPURINOL
     Dosage: 100 MG, QD
     Route: 048
     Dates: end: 200611
  6. CYTOXAN [Concomitant]
     Active Substance: CYCLOPHOSPHAMIDE
     Dosage: UNK
     Dates: start: 20140914
  7. CYCLOSPORIN [Concomitant]
     Active Substance: CYCLOSPORINE
  8. EPOGEN [Suspect]
     Active Substance: ERYTHROPOIETIN
     Dosage: 30000 IU, 3 TIMES/WK
     Route: 058
     Dates: start: 200407, end: 20070206
  9. HYDRALAZINE HYDROCHLORIDE. [Concomitant]
     Active Substance: HYDRALAZINE HYDROCHLORIDE
     Indication: BLOOD PRESSURE
     Dosage: 50 MG, BID
     Route: 048
     Dates: start: 20070129
  10. FELODIPINE. [Concomitant]
     Active Substance: FELODIPINE
     Dosage: UNK
  11. AMLODIPINE [Concomitant]
     Active Substance: AMLODIPINE BESYLATE
     Indication: BLOOD PRESSURE
     Dosage: 5 MG, QD
     Route: 048
  12. LISINOPRIL. [Concomitant]
     Active Substance: LISINOPRIL
     Indication: BLOOD PRESSURE
     Dosage: 40 MG, QD
     Route: 048
  13. NEPHRO-VITE [Concomitant]
     Dosage: UNK UNK, UNK
  14. CARVEDILOL. [Concomitant]
     Active Substance: CARVEDILOL
     Indication: BLOOD PRESSURE
     Dosage: 25 MG, BID
     Route: 048
  15. OMONTYS [Concomitant]
     Active Substance: PEGINESATIDE
     Dosage: UNK
     Dates: start: 20120618, end: 20121205
  16. PREDNISONE. [Concomitant]
     Active Substance: PREDNISONE
     Dosage: UNK
     Dates: start: 20140914
  17. EPOGEN [Suspect]
     Active Substance: ERYTHROPOIETIN
     Indication: CHRONIC KIDNEY DISEASE
     Dosage: 30000 IU, 3 TIMES/WK
     Route: 058
     Dates: start: 200407, end: 20070206
  18. EPOGEN [Suspect]
     Active Substance: ERYTHROPOIETIN
     Indication: DIALYSIS
     Dosage: 30000 IU, 3 TIMES/WK
     Route: 058
     Dates: start: 200407, end: 20070206
  19. PHOS-LO [Concomitant]
     Dosage: UNK

REACTIONS (19)
  - Bone marrow failure [Unknown]
  - Ascites [Unknown]
  - Thrombocytopenia [Not Recovered/Not Resolved]
  - Splenomegaly [Not Recovered/Not Resolved]
  - Haemoglobin decreased [Not Recovered/Not Resolved]
  - Non-neutralising antibodies positive [Unknown]
  - Abdominal pain [Not Recovered/Not Resolved]
  - Transaminases increased [Unknown]
  - Transfusion [Unknown]
  - Drug effect decreased [Unknown]
  - Hepatomegaly [Not Recovered/Not Resolved]
  - Blood bilirubin increased [Unknown]
  - Anaemia [Not Recovered/Not Resolved]
  - Parvovirus B19 test positive [Unknown]
  - Anti-erythropoietin antibody positive [Unknown]
  - Iron overload [Not Recovered/Not Resolved]
  - Immunodeficiency [Unknown]
  - Injection site urticaria [Unknown]
  - Drug hypersensitivity [Unknown]

NARRATIVE: CASE EVENT DATE: 20061005
